FAERS Safety Report 4488250-X (Version None)
Quarter: 2004Q4

REPORT INFORMATION
  Report Type: 
  Country: None (occurrence: None)
  Receive Date: 20041021
  Receipt Date: 20041012
  Transmission Date: 20050328
  Serious: No
  Sender: FDA-Public Use
  Company Number: 2004UW19086

PATIENT
  Age: 58 Year
  Sex: Female

DRUGS (8)
  1. CRESTOR [Suspect]
     Indication: HYPERLIPIDAEMIA
     Dosage: 10 MG PO
     Route: 048
     Dates: start: 20040709, end: 20040804
  2. ZESTRIL [Concomitant]
  3. ZIRTEC [Concomitant]
  4. MICROZIDE [Concomitant]
  5. NASACORT [Concomitant]
  6. VANCERIL [Concomitant]
  7. NO MATCH [Concomitant]
  8. ALBUTEROL [Concomitant]

REACTIONS (2)
  - HYPOVOLAEMIA [None]
  - RENAL FAILURE ACUTE [None]
